FAERS Safety Report 12352940 (Version 3)
Quarter: 2018Q3

REPORT INFORMATION
  Report Type: Spontaneous
  Country: US (occurrence: US)
  Receive Date: 20160510
  Receipt Date: 20180927
  Transmission Date: 20181010
  Serious: Yes (Death, Other)
  Sender: FDA-Public Use
  Company Number: US-ASTRAZENECA-2016SE48223

PATIENT
  Age: 22835 Day
  Sex: Female
  Weight: 90.7 kg

DRUGS (30)
  1. BYETTA [Suspect]
     Active Substance: EXENATIDE
     Dosage: 10 MCG/0.04ML, TWICE A DAY
     Route: 065
     Dates: start: 20120109, end: 20140405
  2. BYSTOLIC [Concomitant]
     Active Substance: NEBIVOLOL HYDROCHLORIDE
     Dosage: 5 MG
  3. GLUCOTROL XL [Concomitant]
     Active Substance: GLIPIZIDE
  4. ACETAMINOPHEN. [Concomitant]
     Active Substance: ACETAMINOPHEN
     Indication: PAIN
     Dosage: 1?2 TABS, EVERY 6 HOURS
     Route: 048
  5. LIPITOR [Concomitant]
     Active Substance: ATORVASTATIN CALCIUM
     Dosage: 10 MG IN THE MORNING
     Route: 048
  6. HYDROCHLOROTHIAZIDE. [Concomitant]
     Active Substance: HYDROCHLOROTHIAZIDE
     Route: 048
     Dates: start: 20110602
  7. PROAIR HFA [Concomitant]
     Active Substance: ALBUTEROL SULFATE
     Route: 065
     Dates: start: 20130511
  8. HYDROCOD/ACETAM [Concomitant]
     Dosage: 5?325 MG
     Route: 048
     Dates: start: 20140410
  9. BYETTA [Suspect]
     Active Substance: EXENATIDE
     Dosage: 5 MCG/0.02ML, TWICE A DAY
     Route: 065
     Dates: start: 20111026, end: 20120109
  10. NEXIUM [Concomitant]
     Active Substance: ESOMEPRAZOLE MAGNESIUM
     Dosage: 40 MG IN THE MORNING
     Route: 048
  11. LOVENOX [Concomitant]
     Active Substance: ENOXAPARIN SODIUM
  12. TRAZODONE HYDROCHLORIDE. [Concomitant]
     Active Substance: TRAZODONE HYDROCHLORIDE
     Dosage: 50 MG, 1/2 EVERY DAY
  13. AMLODIPINE BESYLATE. [Concomitant]
     Active Substance: AMLODIPINE BESYLATE
     Route: 048
     Dates: start: 20091105
  14. FLUOCINONIDE. [Concomitant]
     Active Substance: FLUOCINONIDE
     Dosage: APPLY A THIN COAT
     Route: 065
     Dates: start: 20100317
  15. TRAZODONE [Concomitant]
     Active Substance: TRAZODONE HYDROCHLORIDE
     Route: 048
     Dates: start: 20110203
  16. HYDROCHLOROTHIAZIDE. [Concomitant]
     Active Substance: HYDROCHLOROTHIAZIDE
     Dosage: 25 MH IN THE MORNING
  17. METFORMIN HYDROCHLORIDE. [Concomitant]
     Active Substance: METFORMIN HYDROCHLORIDE
  18. ASPIRIN. [Concomitant]
     Active Substance: ASPIRIN
     Dosage: 81 MG IN THE MORNING
     Route: 048
  19. MIRALAX [Concomitant]
     Active Substance: POLYETHYLENE GLYCOL 3350
     Indication: CONSTIPATION
     Dosage: 17G ONCE A DAY
  20. ZOFRAN [Concomitant]
     Active Substance: ONDANSETRON HYDROCHLORIDE
     Indication: NAUSEA
     Dosage: 17G ONCE A DAY
  21. FENTANYL. [Concomitant]
     Active Substance: FENTANYL
     Dosage: 1 PATCH EVERY 72 HRS
     Route: 062
  22. CETIRIZINE [Concomitant]
     Active Substance: CETIRIZINE HYDROCHLORIDE
     Dosage: 10 MG ONCE DAY
     Route: 048
  23. NABUMETONE. [Concomitant]
     Active Substance: NABUMETONE
     Route: 048
     Dates: start: 20110729
  24. BENZONATATE. [Concomitant]
     Active Substance: BENZONATATE
     Route: 048
     Dates: start: 20130511
  25. CYCLOBENZAPRINE. [Concomitant]
     Active Substance: CYCLOBENZAPRINE
     Route: 048
     Dates: start: 20110729
  26. METFORMIN [Concomitant]
     Active Substance: METFORMIN HYDROCHLORIDE
     Route: 048
     Dates: start: 20120820
  27. DIOVEN [Concomitant]
  28. LISINOPRIL. [Concomitant]
     Active Substance: LISINOPRIL
     Route: 048
     Dates: start: 20080827
  29. CLOTRIMAZOLE. [Concomitant]
     Active Substance: CLOTRIMAZOLE
     Route: 048
  30. AZITHROMYCIN ANHYDROUS. [Concomitant]
     Active Substance: AZITHROMYCIN ANHYDROUS
     Route: 048
     Dates: start: 20130219

REACTIONS (4)
  - Pancreatic carcinoma metastatic [Unknown]
  - Pancreatic carcinoma [Fatal]
  - Lung neoplasm malignant [Unknown]
  - Hepatic cancer [Unknown]

NARRATIVE: CASE EVENT DATE: 20140428
